FAERS Safety Report 23913954 (Version 2)
Quarter: 2024Q2

REPORT INFORMATION
  Report Type: Spontaneous
  Country: ES (occurrence: None)
  Receive Date: 20240529
  Receipt Date: 20240625
  Transmission Date: 20240716
  Serious: Yes (Other)
  Sender: FDA-Public Use
  Company Number: 2024A121399

PATIENT
  Sex: Female

DRUGS (1)
  1. SYMBICORT [Suspect]
     Active Substance: BUDESONIDE\FORMOTEROL FUMARATE DIHYDRATE
     Indication: Bronchitis
     Route: 055

REACTIONS (4)
  - Condition aggravated [Unknown]
  - Device delivery system issue [Unknown]
  - Product dose omission issue [Unknown]
  - Off label use [Unknown]
